FAERS Safety Report 15353401 (Version 1)
Quarter: 2018Q3

REPORT INFORMATION
  Report Type: Spontaneous
  Country: US (occurrence: US)
  Receive Date: 20180905
  Receipt Date: 20180905
  Transmission Date: 20181010
  Serious: No
  Sender: FDA-Public Use
  Company Number: US-BIOMARINAP-US-2018-119597

PATIENT
  Sex: Female

DRUGS (1)
  1. KUVAN [Suspect]
     Active Substance: SAPROPTERIN DIHYDROCHLORIDE
     Indication: PHENYLKETONURIA
     Dosage: 1700 MILLIGRAM, QD
     Route: 048
     Dates: start: 2012

REACTIONS (8)
  - Pain [Unknown]
  - Tooth infection [Unknown]
  - Hypokinesia [Unknown]
  - Headache [Not Recovered/Not Resolved]
  - Dyspepsia [Unknown]
  - Fall [Unknown]
  - Photophobia [Unknown]
  - Dental caries [Unknown]
